FAERS Safety Report 13228356 (Version 2)
Quarter: 2018Q1

REPORT INFORMATION
  Report Type: Spontaneous
  Country: US (occurrence: US)
  Receive Date: 20170213
  Receipt Date: 20180219
  Transmission Date: 20180508
  Serious: No
  Sender: FDA-Public Use
  Company Number: US-ROCHE-1850394

PATIENT
  Sex: Female
  Weight: 66.8 kg

DRUGS (7)
  1. BUDESONIDE. [Concomitant]
     Active Substance: BUDESONIDE
     Indication: ASTHMA
  2. QVAR [Concomitant]
     Active Substance: BECLOMETHASONE DIPROPIONATE
     Indication: ASTHMA
     Route: 065
     Dates: start: 201303, end: 20161102
  3. CETIRIZINE [Concomitant]
     Active Substance: CETIRIZINE HYDROCHLORIDE
  4. XOLAIR [Suspect]
     Active Substance: OMALIZUMAB
     Indication: ASTHMA
     Dosage: 225
     Route: 058
     Dates: start: 201601
  5. ALBUTEROL. [Concomitant]
     Active Substance: ALBUTEROL
  6. XOLAIR [Suspect]
     Active Substance: OMALIZUMAB
     Route: 058
  7. PULMICORT TURBUHALER [Concomitant]
     Active Substance: BUDESONIDE
     Indication: ASTHMA
     Route: 065
     Dates: start: 20161102

REACTIONS (2)
  - Pregnancy [Unknown]
  - No adverse event [Unknown]
